FAERS Safety Report 9205776 (Version 2)
Quarter: 2013Q2

REPORT INFORMATION
  Report Type: Spontaneous
  Country: JP (occurrence: None)
  Receive Date: 20130401
  Receipt Date: 20130416
  Transmission Date: 20140414
  Serious: Yes (Other)
  Sender: FDA-Public Use
  Company Number: TPA2013A02385

PATIENT
  Age: 41 Year
  Sex: Male

DRUGS (3)
  1. FEBURIC (FEBUXOSTAT) [Suspect]
     Indication: GOUT
     Dosage: 20 MG (20 MG, 1 IN 1 D)  PER ORAL
     Route: 048
     Dates: start: 20121127, end: 20130312
  2. AMLODIPINE (AMLODIPINE) [Concomitant]
  3. NU-LOTAN (LOSARTAN POTASSIUM) [Concomitant]

REACTIONS (4)
  - Rash generalised [None]
  - Flushing [None]
  - Rash erythematous [None]
  - Drug eruption [None]
